FAERS Safety Report 8897610 (Version 1)
Quarter: 2012Q4

REPORT INFORMATION
  Report Type: Spontaneous
  Country: US (occurrence: None)
  Receive Date: 20121106
  Receipt Date: 20121106
  Transmission Date: 20130627
  Serious: Yes (Hospitalization)
  Sender: FDA-Public Use
  Company Number: SAN_00516_2012

PATIENT
  Age: 59 Year
  Sex: Female

DRUGS (10)
  1. METFORMIN [Suspect]
     Indication: PRODUCT USED FOR UNKNOWN INDICATION
     Dosage: (DF Oral)
     Route: 048
  2. GEMFIBROZIL [Concomitant]
  3. NIACIN [Concomitant]
  4. GLIPIZIDE [Concomitant]
  5. OMEPRAZOLE [Concomitant]
  6. FUROSEMIDE [Concomitant]
  7. FUROSEMIDE [Concomitant]
  8. RISPERDAL [Concomitant]
  9. LISINOPRIL [Concomitant]
  10. ASPIRIN [Concomitant]

REACTIONS (8)
  - Hepatitis cholestatic [None]
  - Platelet count decreased [None]
  - Coagulopathy [None]
  - Drug-induced liver injury [None]
  - Renal failure acute [None]
  - Electrolyte imbalance [None]
  - Hepatic fibrosis [None]
  - International normalised ratio increased [None]
